FAERS Safety Report 6941194-3 (Version None)
Quarter: 2010Q3

REPORT INFORMATION
  Report Type: 
  Country: None (occurrence: None)
  Receive Date: 20100825
  Receipt Date: 20100621
  Transmission Date: 20110219
  Serious: No
  Sender: FDA-Public Use
  Company Number: US-BRISTOL-MYERS SQUIBB COMPANY-15158710

PATIENT
  Age: 45 Year
  Sex: Female

DRUGS (6)
  1. ONGLYZA [Suspect]
     Dates: start: 20091201
  2. HYZAAR [Concomitant]
  3. METFORMIN HCL [Concomitant]
  4. COREG [Concomitant]
     Dosage: COREG CR
  5. CARDIZEM [Concomitant]
  6. LIPITOR [Concomitant]

REACTIONS (1)
  - COUGH [None]
